FAERS Safety Report 6666951-2 (Version None)
Quarter: 2010Q2

REPORT INFORMATION
  Report Type: 
  Country: None (occurrence: None)
  Receive Date: 20100405
  Receipt Date: 20100330
  Transmission Date: 20101027
  Serious: Yes (Death, Hospitalization)
  Sender: FDA-Public Use
  Company Number: PHHY2009KR51500

PATIENT
  Sex: Male

DRUGS (2)
  1. GLEEVEC [Suspect]
     Indication: CHRONIC MYELOID LEUKAEMIA
     Dosage: 400 MG PER DAY
     Route: 048
     Dates: start: 20051221
  2. GLEEVEC [Suspect]
     Dosage: UNK
     Route: 048
     Dates: start: 20060612

REACTIONS (7)
  - DYSPHAGIA [None]
  - GASTRIC CANCER [None]
  - GASTRIC HAEMORRHAGE [None]
  - METASTASES TO OESOPHAGUS [None]
  - NEOPLASM MALIGNANT [None]
  - PAIN [None]
  - PLATELET COUNT DECREASED [None]
